FAERS Safety Report 19744991 (Version 1)
Quarter: 2021Q3

REPORT INFORMATION
  Report Type: Spontaneous
  Country: US (occurrence: US)
  Receive Date: 20210823
  Receipt Date: 20210823
  Transmission Date: 20211014
  Serious: No
  Sender: FDA-Public Use
  Company Number: None

PATIENT

DRUGS (1)
  1. 5?FU [Suspect]
     Active Substance: FLUOROURACIL

REACTIONS (1)
  - Accidental exposure to product [None]
